FAERS Safety Report 6952359-9 (Version None)
Quarter: 2010Q3

REPORT INFORMATION
  Report Type: 
  Country: None (occurrence: None)
  Receive Date: 20100829
  Receipt Date: 20100503
  Transmission Date: 20110219
  Serious: No
  Sender: FDA-Public Use
  Company Number: US-ABBOTT-10P-163-0641966-00

PATIENT
  Sex: Male
  Weight: 89.438 kg

DRUGS (7)
  1. NIASPAN [Suspect]
     Indication: HIGH DENSITY LIPOPROTEIN DECREASED
     Dosage: AT BED TIME
     Route: 048
     Dates: start: 20100426, end: 20100427
  2. LISINOPRIL [Concomitant]
     Indication: PRODUCT USED FOR UNKNOWN INDICATION
     Route: 048
  3. SIMVASTATIN [Concomitant]
     Indication: PRODUCT USED FOR UNKNOWN INDICATION
     Route: 048
  4. ASPIRIN [Concomitant]
     Indication: PRODUCT USED FOR UNKNOWN INDICATION
     Route: 048
  5. FISH OIL [Concomitant]
     Indication: PRODUCT USED FOR UNKNOWN INDICATION
     Route: 048
  6. ALPRAZONE [Concomitant]
     Indication: ANXIETY
     Route: 048
  7. HYDROCODONE BITARTRATE [Concomitant]
     Indication: PAIN
     Route: 048

REACTIONS (2)
  - FEELING HOT [None]
  - FLUSHING [None]
